FAERS Safety Report 21395303 (Version 1)
Quarter: 2022Q3

REPORT INFORMATION
  Report Type: Spontaneous
  Country: JP (occurrence: JP)
  Receive Date: 20220930
  Receipt Date: 20220930
  Transmission Date: 20221027
  Serious: Yes (Other)
  Sender: FDA-Public Use
  Company Number: JP-TAKEDA-2022TJP074591

PATIENT
  Age: 81 Year
  Sex: Female
  Weight: 62.1 kg

DRUGS (5)
  1. ALUNBRIG [Suspect]
     Active Substance: BRIGATINIB
     Indication: Non-small cell lung cancer
     Dosage: UNK
     Route: 048
     Dates: start: 202108, end: 202201
  2. ALUNBRIG [Suspect]
     Active Substance: BRIGATINIB
     Dosage: 120 MILLIGRAM
     Route: 048
     Dates: start: 202201, end: 202205
  3. ALUNBRIG [Suspect]
     Active Substance: BRIGATINIB
     Dosage: 90 MILLIGRAM
     Route: 048
     Dates: start: 202205
  4. ELDECALCITOL [Concomitant]
     Active Substance: ELDECALCITOL
     Dosage: 0.75 MICROGRAM, QD
     Route: 065
  5. ESOMEPRAZOLE MAGNESIUM [Concomitant]
     Active Substance: ESOMEPRAZOLE MAGNESIUM
     Dosage: 20 MILLIGRAM, QD
     Route: 065

REACTIONS (4)
  - Blood creatine phosphokinase increased [Unknown]
  - Amylase abnormal [Unknown]
  - Superior vena cava syndrome [Not Recovered/Not Resolved]
  - Tumour marker abnormal [Unknown]

NARRATIVE: CASE EVENT DATE: 20211001
